FAERS Safety Report 24687016 (Version 2)
Quarter: 2025Q1

REPORT INFORMATION
  Report Type: Spontaneous
  Country: US (occurrence: US)
  Receive Date: 20241202
  Receipt Date: 20250102
  Transmission Date: 20250409
  Serious: No
  Sender: PFIZER
  Company Number: US-PFIZER INC-PV202400145296

PATIENT
  Age: 76 Year
  Sex: Female

DRUGS (2)
  1. PREMARIN [Suspect]
     Active Substance: ESTROGENS, CONJUGATED
     Route: 048
  2. PROVERA [Concomitant]
     Active Substance: MEDROXYPROGESTERONE ACETATE

REACTIONS (6)
  - Hypertension [Unknown]
  - Condition aggravated [Unknown]
  - Flushing [Unknown]
  - Insomnia [Unknown]
  - Emotional disorder [Unknown]
  - Off label use [Unknown]
